FAERS Safety Report 10423029 (Version 1)
Quarter: 2014Q3

REPORT INFORMATION
  Report Type: Spontaneous
  Country: IT (occurrence: IT)
  Receive Date: 20140902
  Receipt Date: 20140902
  Transmission Date: 20150326
  Serious: Yes (Other)
  Sender: FDA-Public Use
  Company Number: IT-ACCORD-025607

PATIENT
  Age: 45 Year
  Sex: Female
  Weight: 42 kg

DRUGS (5)
  1. SOLDESAM [Concomitant]
     Active Substance: DEXAMETHASONE
     Indication: PREMEDICATION
     Route: 042
  2. RANITIDINE [Concomitant]
     Active Substance: RANITIDINE\RANITIDINE HYDROCHLORIDE
     Indication: PREMEDICATION
     Route: 042
  3. ACCORD PACLITAXEL [Suspect]
     Active Substance: PACLITAXEL
     Indication: BREAST CANCER
     Route: 042
     Dates: start: 20120804, end: 20140812
  4. CHLORPHENAMINE [Concomitant]
     Active Substance: CHLORPHENIRAMINE MALEATE
     Indication: PREMEDICATION
     Route: 042
  5. LIMICAN [Concomitant]
     Indication: PREMEDICATION
     Route: 042

REACTIONS (3)
  - Paraesthesia [Recovered/Resolved]
  - Hot flush [Recovered/Resolved]
  - Throat tightness [Recovered/Resolved]

NARRATIVE: CASE EVENT DATE: 20140812
